FAERS Safety Report 21272179 (Version 1)
Quarter: 2022Q3

REPORT INFORMATION
  Report Type: Spontaneous
  Country: US (occurrence: US)
  Receive Date: 20220830
  Receipt Date: 20220830
  Transmission Date: 20221027
  Serious: No
  Sender: FDA-Public Use
  Company Number: US-BRAINTREE LABORATORIES, INC.-2022BTE00510

PATIENT
  Age: 51 Year
  Sex: Male
  Weight: 84.807 kg

DRUGS (10)
  1. SUTAB [Suspect]
     Active Substance: MAGNESIUM SULFATE\POTASSIUM CHLORIDE\SODIUM SULFATE
     Indication: Colonoscopy
     Dosage: 2X 12 TABLETS, 1X
     Route: 048
     Dates: start: 20220613, end: 20220614
  2. ^SOME MEDICATIONS^ [Concomitant]
  3. ^COCKTAIL FOR HIV^ [Concomitant]
  4. EDURANT [Concomitant]
     Active Substance: RILPIVIRINE HYDROCHLORIDE
  5. ISENTRESS [Concomitant]
     Active Substance: RALTEGRAVIR POTASSIUM
  6. LAMIVUDINE [Concomitant]
     Active Substance: LAMIVUDINE
  7. ^ALL CLEAR^ [Concomitant]
  8. TOPIRAMATE [Concomitant]
     Active Substance: TOPIRAMATE
  9. WELLBUTRIN [Concomitant]
     Active Substance: BUPROPION HYDROCHLORIDE
  10. MORPHINE SULFATE [Concomitant]
     Active Substance: MORPHINE SULFATE

REACTIONS (3)
  - Nausea [Recovered/Resolved]
  - Vomiting [Recovered/Resolved]
  - Abdominal pain upper [Recovered/Resolved]

NARRATIVE: CASE EVENT DATE: 20220613
